FAERS Safety Report 5354487-0 (Version None)
Quarter: 2007Q2

REPORT INFORMATION
  Report Type: 
  Country: None (occurrence: None)
  Receive Date: 20070608
  Receipt Date: 20070525
  Transmission Date: 20071010
  Serious: Yes (Hospitalization)
  Sender: FDA-Public Use
  Company Number: S07-FRA-02422-01

PATIENT
  Age: 32 Year
  Sex: Female

DRUGS (3)
  1. CITALOPRAM HYDROBROMIDE [Suspect]
     Indication: DEPRESSION
     Dosage: 1 QD PO
     Route: 048
     Dates: start: 20070215, end: 20070328
  2. JASMINE                   (DROSPIRENONE W/ ETHINYL ESTRADIOL) [Suspect]
     Indication: ORAL CONTRACEPTION
     Dosage: 1 QD PO
     Route: 048
     Dates: start: 20070215, end: 20070328
  3. ZOMIG [Concomitant]

REACTIONS (1)
  - CEREBRAL THROMBOSIS [None]
